FAERS Safety Report 7830336-3 (Version None)
Quarter: 2011Q4

REPORT INFORMATION
  Report Type: 
  Country: None (occurrence: None)
  Receive Date: 20111021
  Receipt Date: 20111014
  Transmission Date: 20120403
  Serious: Yes (Other)
  Sender: FDA-Public Use
  Company Number: BR-BRISTOL-MYERS SQUIBB COMPANY-16169922

PATIENT

DRUGS (1)
  1. IRBESARTAN + HYDROCHLOROTHIAZIDE [Suspect]
     Dosage: 1DF=300/12.5MG SINCE 2-3 YEARS AGO

REACTIONS (1)
  - FOOT FRACTURE [None]
